FAERS Safety Report 19902387 (Version 11)
Quarter: 2022Q4

REPORT INFORMATION
  Report Type: Report from Study
  Country: JP (occurrence: JP)
  Receive Date: 20210930
  Receipt Date: 20221109
  Transmission Date: 20230113
  Serious: Yes (Death, Hospitalization)
  Sender: FDA-Public Use
  Company Number: JP-ABBVIE-21K-087-4100959-00

PATIENT
  Age: 82 Year
  Sex: Male
  Weight: 56 kg

DRUGS (8)
  1. VENCLEXTA [Suspect]
     Active Substance: VENETOCLAX
     Indication: Acute myeloid leukaemia
     Route: 048
     Dates: start: 20210510, end: 20210605
  2. VENCLEXTA [Suspect]
     Active Substance: VENETOCLAX
     Indication: Acute myeloid leukaemia
     Route: 048
     Dates: start: 20210627, end: 20210915
  3. VIDAZA [Suspect]
     Active Substance: AZACITIDINE
     Indication: Acute myeloid leukaemia
     Route: 050
     Dates: start: 20210510
  4. HYDREA [Suspect]
     Active Substance: HYDROXYUREA
     Indication: Acute myeloid leukaemia
     Route: 048
  5. FEBUXOSTAT [Concomitant]
     Active Substance: FEBUXOSTAT
     Indication: Tumour lysis syndrome
     Route: 048
     Dates: start: 20210510
  6. ITRACONAZOLE [Concomitant]
     Active Substance: ITRACONAZOLE
     Indication: Infection prophylaxis
     Route: 048
     Dates: start: 20210316
  7. CLARITHROMYCIN [Concomitant]
     Active Substance: CLARITHROMYCIN
     Indication: Product used for unknown indication
     Route: 048
     Dates: start: 20201111
  8. ISONIAZID HACHI [Concomitant]
     Indication: Infection prophylaxis
     Route: 048
     Dates: start: 20201009

REACTIONS (12)
  - Candida sepsis [Fatal]
  - Myelosuppression [Recovering/Resolving]
  - Pyrexia [Recovered/Resolved]
  - Cardiac failure chronic [Recovering/Resolving]
  - Candida sepsis [Recovered/Resolved]
  - Haematuria [Recovered/Resolved]
  - Bladder tamponade [Recovered/Resolved]
  - Haematuria [Recovering/Resolving]
  - Bladder tamponade [Recovering/Resolving]
  - Cardiac failure chronic [Recovering/Resolving]
  - Pneumonia aspiration [Recovering/Resolving]
  - Fall [Recovered/Resolved with Sequelae]

NARRATIVE: CASE EVENT DATE: 20210603
